FAERS Safety Report 25594233 (Version 1)
Quarter: 2025Q3

REPORT INFORMATION
  Report Type: Spontaneous
  Country: US (occurrence: US)
  Receive Date: 20250723
  Receipt Date: 20250723
  Transmission Date: 20251021
  Serious: Yes (Life-Threatening, Hospitalization, Other)
  Sender: UNICHEM
  Company Number: US-UNICHEM LABORATORIES LIMITED-UNI-2025-US-002784

PATIENT

DRUGS (1)
  1. AMLODIPINE [Suspect]
     Active Substance: AMLODIPINE BESYLATE
     Indication: Product used for unknown indication
     Route: 048

REACTIONS (7)
  - Intentional overdose [Unknown]
  - Suicide attempt [Unknown]
  - Non-cardiogenic pulmonary oedema [Unknown]
  - Leukocytosis [Unknown]
  - Hyperglycaemia [Unknown]
  - Hypotension [Unknown]
  - Tachycardia [Unknown]
